FAERS Safety Report 14825856 (Version 2)
Quarter: 2018Q3

REPORT INFORMATION
  Report Type: Spontaneous
  Country: US (occurrence: US)
  Receive Date: 20180430
  Receipt Date: 20180712
  Transmission Date: 20181010
  Serious: No
  Sender: FDA-Public Use
  Company Number: US-PFIZER INC-2018170751

PATIENT
  Age: 67 Year
  Sex: Male

DRUGS (6)
  1. SIMVASTATIN. [Concomitant]
     Active Substance: SIMVASTATIN
     Dosage: UNK
     Dates: start: 1992
  2. METOPROLOL. [Concomitant]
     Active Substance: METOPROLOL
     Dosage: UNK
     Dates: start: 2011
  3. METFORMIN [Concomitant]
     Active Substance: METFORMIN HYDROCHLORIDE
     Dosage: UNK
     Dates: start: 2002
  4. PRILOSEC [Concomitant]
     Active Substance: OMEPRAZOLE MAGNESIUM
     Dosage: UNK
     Dates: start: 1989
  5. SUTENT [Suspect]
     Active Substance: SUNITINIB MALATE
     Indication: RENAL CANCER
     Dosage: 50 MG, CYCLIC [DAILY FOR 2 WEEKS ON/1 WEEK OFF]/ (OAD 2 WKS ON 1 OFF)
     Dates: start: 20180411, end: 2018
  6. SUTENT [Suspect]
     Active Substance: SUNITINIB MALATE
     Indication: POSTOPERATIVE CARE

REACTIONS (10)
  - Oral discomfort [Recovered/Resolved]
  - Nausea [Recovered/Resolved]
  - Ageusia [Recovered/Resolved]
  - Dry mouth [Recovered/Resolved]
  - Pruritus [Recovered/Resolved]
  - Hypoaesthesia [Recovered/Resolved]
  - Dizziness [Recovered/Resolved]
  - Tongue blistering [Recovered/Resolved]
  - Tongue discomfort [Recovered/Resolved]
  - Stomatitis [Recovered/Resolved]

NARRATIVE: CASE EVENT DATE: 201804
